FAERS Safety Report 7311094-8 (Version None)
Quarter: 2011Q1

REPORT INFORMATION
  Report Type: 
  Country: None (occurrence: None)
  Receive Date: 20110224
  Receipt Date: 20110217
  Transmission Date: 20110831
  Serious: Yes (Death, Hospitalization)
  Sender: FDA-Public Use
  Company Number: FR-ROCHE-747211

PATIENT
  Sex: Male
  Weight: 70 kg

DRUGS (6)
  1. PEGINTERFERON ALFA-2A [Suspect]
     Indication: HEPATITIS C
     Dosage: LAST DOSE PRIOR TO SAE WAS GIVEN ON 29 OCT 2010
     Route: 058
     Dates: start: 20100326
  2. JANUVIA [Concomitant]
  3. GLUCOPHAGE [Concomitant]
  4. BENSERAZIDE/LEVODOPA [Suspect]
     Route: 065
     Dates: start: 20101027
  5. SEROPLEX [Concomitant]
  6. RIBAVIRIN [Suspect]
     Indication: HEPATITIS C
     Dosage: LAST DOSE PRIOR TO SAE WAS GIVEN ON 02 NOVEMBER 2010
     Route: 048
     Dates: start: 20100326

REACTIONS (4)
  - MALNUTRITION [None]
  - PROGRESSIVE SUPRANUCLEAR PALSY [None]
  - NERVOUS SYSTEM DISORDER [None]
  - ALTERED STATE OF CONSCIOUSNESS [None]
